FAERS Safety Report 6909339-9 (Version None)
Quarter: 2010Q3

REPORT INFORMATION
  Report Type: 
  Country: None (occurrence: None)
  Receive Date: 20100805
  Receipt Date: 20100730
  Transmission Date: 20110219
  Serious: Yes (Life-Threatening)
  Sender: FDA-Public Use
  Company Number: PHHY2010DE50396

PATIENT
  Age: 49 Year
  Sex: Male
  Weight: 95 kg

DRUGS (2)
  1. LEPONEX [Suspect]
     Indication: SCHIZOPHRENIA
     Dosage: 100 MG, QD
  2. BISOPROLOL [Concomitant]
     Dosage: 5 MG, QD

REACTIONS (6)
  - ALANINE AMINOTRANSFERASE INCREASED [None]
  - ASPARTATE AMINOTRANSFERASE INCREASED [None]
  - BLOOD CREATINE PHOSPHOKINASE INCREASED [None]
  - NEUROLEPTIC MALIGNANT SYNDROME [None]
  - RHABDOMYOLYSIS [None]
  - TRANSAMINASES INCREASED [None]
